FAERS Safety Report 4921306-3 (Version None)
Quarter: 2006Q1

REPORT INFORMATION
  Report Type: 
  Country: None (occurrence: None)
  Receive Date: 20060224
  Receipt Date: 20060120
  Transmission Date: 20060701
  Serious: Yes (Hospitalization)
  Sender: FDA-Public Use
  Company Number: US-BRISTOL-MYERS SQUIBB COMPANY-13256227

PATIENT
  Age: 49 Year
  Sex: Male

DRUGS (8)
  1. CISPLATIN [Suspect]
     Indication: GASTRIC CANCER STAGE IV
     Route: 042
     Dates: start: 20051216, end: 20051216
  2. FLUOROURACIL [Suspect]
     Indication: GASTRIC CANCER STAGE IV
     Route: 042
     Dates: start: 20051216, end: 20051221
  3. CARAFATE [Concomitant]
     Indication: STOMATITIS
     Route: 048
     Dates: start: 20051229
  4. CARAFATE [Concomitant]
     Indication: MUCOSAL INFLAMMATION
     Route: 048
     Dates: start: 20051229
  5. IRON [Concomitant]
     Indication: ANAEMIA
     Route: 048
     Dates: start: 20051101
  6. CRESTOR [Concomitant]
     Indication: HYPERLIPIDAEMIA
     Route: 048
     Dates: start: 20051101
  7. BENICAR [Concomitant]
     Indication: HYPERTENSION
     Route: 048
     Dates: start: 20010101
  8. HYDROCHLOROTHIAZIDE [Concomitant]
     Indication: HYPERTENSION
     Route: 048
     Dates: start: 20010101

REACTIONS (1)
  - NEUTROPENIA [None]
